FAERS Safety Report 7609140-7 (Version None)
Quarter: 2011Q3

REPORT INFORMATION
  Report Type: 
  Country: None (occurrence: None)
  Receive Date: 20110714
  Receipt Date: 20110704
  Transmission Date: 20111222
  Serious: Yes (Hospitalization, Other)
  Sender: FDA-Public Use
  Company Number: FR-ABBOTT-11P-056-0718440-00

PATIENT
  Sex: Female
  Weight: 70 kg

DRUGS (4)
  1. HUMIRA [Suspect]
     Indication: PSORIATIC ARTHROPATHY
     Dosage: 8-10 DAYS
     Route: 058
     Dates: start: 20060906, end: 20110101
  2. HUMIRA [Suspect]
     Indication: ANKYLOSING SPONDYLITIS
  3. METHOTREXATE [Suspect]
     Route: 030
     Dates: start: 20010101, end: 20030101
  4. METHOTREXATE [Suspect]
     Indication: PSORIATIC ARTHROPATHY
     Route: 030
     Dates: start: 20060501, end: 20101201

REACTIONS (5)
  - TRANSAMINASES ABNORMAL [None]
  - CHOLESTASIS [None]
  - AUTOIMMUNE HEPATITIS [None]
  - HEPATIC FUNCTION ABNORMAL [None]
  - CYTOLYTIC HEPATITIS [None]
